FAERS Safety Report 7512223-3 (Version None)
Quarter: 2011Q2

REPORT INFORMATION
  Report Type: 
  Country: None (occurrence: None)
  Receive Date: 20110531
  Receipt Date: 20110524
  Transmission Date: 20111010
  Serious: Yes (Death, Hospitalization)
  Sender: FDA-Public Use
  Company Number: JP-BAYER-201010387BYL

PATIENT
  Age: 62 Year
  Sex: Male
  Weight: 64.5 kg

DRUGS (15)
  1. NEXAVAR [Suspect]
     Indication: HEPATIC NEOPLASM MALIGNANT
     Route: 048
     Dates: start: 20090610, end: 20090701
  2. DIART [Concomitant]
     Dosage: SINCE BEFORE ADMINISTRATION
     Route: 048
  3. OMEPRAZOLE [Concomitant]
     Dosage: SINCE BEFORE ADMINISTRATION
     Route: 048
  4. FLUOROURACIL [Concomitant]
     Dosage: 500 MG (DAILY DOSE), , INTRA-ARTERIAL
     Route: 013
     Dates: start: 20090805, end: 20090826
  5. NEXAVAR [Suspect]
     Dosage: 400 MG, BID
     Route: 048
     Dates: start: 20100127
  6. KERATINAMIN [Concomitant]
     Indication: PROPHYLAXIS
     Route: 061
     Dates: start: 20090617
  7. NEXAVAR [Suspect]
     Dosage: 400 MG, BID
     Route: 048
     Dates: start: 20100414, end: 20100423
  8. NEXAVAR [Suspect]
     Dosage: 400 MG, QD
     Route: 048
     Dates: start: 20090701, end: 20091124
  9. NEXAVAR [Suspect]
     Route: 048
     Dates: end: 20091212
  10. KINEDAK [Concomitant]
     Dosage: SINCE BEFORE ADMINISTRATION
     Route: 048
  11. GLAKAY [Concomitant]
     Dosage: SINCE BEFORE ADMINISTRATION
     Route: 048
  12. ALDACTONE [Concomitant]
     Dosage: SINCE BEFORE ADMINISTRATION
     Route: 048
  13. AMARYL [Concomitant]
     Dosage: SINCE BEFORE ADMINISTRATION
     Route: 048
  14. LIVACT [Concomitant]
     Dosage: SINCE BEFORE ADMINISTRATION
     Route: 048
  15. FLUOROURACIL [Concomitant]
     Dosage: 500 MG (DAILY DOSE), , INTRA-ARTERIAL
     Route: 013
     Dates: start: 20090715, end: 20090729

REACTIONS (9)
  - PLEURAL EFFUSION [None]
  - GASTRIC ULCER [None]
  - HEPATIC FUNCTION ABNORMAL [None]
  - DIARRHOEA [None]
  - HEPATIC NEOPLASM MALIGNANT [None]
  - ABDOMINAL PAIN UPPER [None]
  - DUODENAL ULCER [None]
  - NAUSEA [None]
  - UPPER RESPIRATORY TRACT INFLAMMATION [None]
